FAERS Safety Report 24204265 (Version 1)
Quarter: 2024Q3

REPORT INFORMATION
  Report Type: Spontaneous
  Country: US (occurrence: US)
  Receive Date: 20240813
  Receipt Date: 20240813
  Transmission Date: 20241016
  Serious: Yes (Hospitalization)
  Sender: MYLAN
  Company Number: US-MYLANLABS-2024M1074722

PATIENT
  Age: 62 Year
  Sex: Male

DRUGS (6)
  1. LEVOFLOXACIN [Suspect]
     Active Substance: LEVOFLOXACIN
     Indication: Burkholderia pseudomallei infection
     Dosage: 750 MILLIGRAM
     Route: 042
     Dates: start: 2022, end: 2022
  2. LEVOFLOXACIN [Suspect]
     Active Substance: LEVOFLOXACIN
     Indication: Burkholderia pseudomallei infection
     Dosage: 750 MILLIGRAM, QD
     Route: 048
     Dates: start: 2022, end: 2022
  3. VANCOMYCIN [Suspect]
     Active Substance: VANCOMYCIN
     Indication: Burkholderia pseudomallei infection
     Dosage: UNK
     Route: 065
     Dates: start: 2022
  4. PIPERACILLIN AND TAZOBACTAM [Suspect]
     Active Substance: PIPERACILLIN SODIUM\TAZOBACTAM SODIUM
     Indication: Burkholderia pseudomallei infection
     Dosage: UNK
     Route: 065
     Dates: start: 2022
  5. AZITHROMYCIN [Concomitant]
     Active Substance: AZITHROMYCIN
     Indication: Pneumonia
     Dosage: 250 MILLIGRAM,2 TABS ON DAY 1 FOLLOWED BY 1 TAB FOR DAYS 2-5
     Route: 048
     Dates: start: 2022, end: 2022
  6. AMOXICILLIN [Concomitant]
     Active Substance: AMOXICILLIN
     Indication: Pneumonia
     Dosage: 875 MILLIGRAM, BID
     Route: 048
     Dates: start: 2022

REACTIONS (1)
  - Drug ineffective [Unknown]

NARRATIVE: CASE EVENT DATE: 20220101
